FAERS Safety Report 4849815-6 (Version None)
Quarter: 2005Q4

REPORT INFORMATION
  Report Type: 
  Country: None (occurrence: None)
  Receive Date: 20051209
  Receipt Date: 20051005
  Transmission Date: 20060501
  Serious: Yes (Hospitalization, Other)
  Sender: FDA-Public Use
  Company Number: US-MERCK-0510USA04601

PATIENT
  Age: 48 Year
  Sex: Female
  Weight: 77 kg

DRUGS (7)
  1. VIOXX [Suspect]
     Indication: ARTHRALGIA
     Route: 048
     Dates: start: 19990101, end: 20020101
  2. LIPITOR [Concomitant]
     Route: 065
  3. SYNTHROID [Concomitant]
     Route: 065
  4. PREMARIN [Concomitant]
     Route: 065
  5. TOPROL-XL [Concomitant]
     Route: 065
  6. MICARDIS [Concomitant]
     Route: 065
  7. LIPITOR [Concomitant]
     Route: 065

REACTIONS (14)
  - CARDIOVASCULAR DISORDER [None]
  - CHEST PAIN [None]
  - CHOLECYSTITIS [None]
  - CORONARY ARTERY DISEASE [None]
  - FALL [None]
  - FLUID OVERLOAD [None]
  - HEADACHE [None]
  - HYPERTENSION [None]
  - HYPOAESTHESIA [None]
  - INCREASED TENDENCY TO BRUISE [None]
  - KELOID SCAR [None]
  - SALPINGO-OOPHORECTOMY BILATERAL [None]
  - TRANSIENT ISCHAEMIC ATTACK [None]
  - UTERINE DISORDER [None]
